FAERS Safety Report 16940220 (Version 2)
Quarter: 2019Q4

REPORT INFORMATION
  Report Type: Spontaneous
  Country: JP (occurrence: JP)
  Receive Date: 20191021
  Receipt Date: 20191030
  Transmission Date: 20200122
  Serious: Yes (Death, Hospitalization)
  Sender: FDA-Public Use
  Company Number: JP-BAUSCH-BL-2019-058094

PATIENT
  Age: 75 Year
  Sex: Female

DRUGS (4)
  1. PREDNISOLONE. [Suspect]
     Active Substance: PREDNISOLONE
     Dosage: 1 MG/KG/DAY; INCREASED DOSE
     Route: 065
  2. PREDNISOLONE. [Suspect]
     Active Substance: PREDNISOLONE
     Dosage: PSL WAS TAPERED AND DISCONTINUED AT 5 MONTHS AFTER INITIATION
     Route: 065
  3. PREDNISOLONE. [Suspect]
     Active Substance: PREDNISOLONE
     Dosage: ABOUT 2 WEEKS AFTER CORTICOSTEROID THERAPY THE PSL DOSE WAS TAPERED
     Route: 065
     Dates: start: 2013
  4. PREDNISOLONE. [Suspect]
     Active Substance: PREDNISOLONE
     Indication: ORGANISING PNEUMONIA
     Dosage: 0.5 MG/KG/DAY (DURATION ABOUT 2 WEEK)
     Route: 065
     Dates: start: 2013, end: 2013

REACTIONS (2)
  - Respiratory failure [Fatal]
  - Alveolar proteinosis [Not Recovered/Not Resolved]

NARRATIVE: CASE EVENT DATE: 2013
